FAERS Safety Report 8013266-6 (Version None)
Quarter: 2011Q4

REPORT INFORMATION
  Report Type: 
  Country: None (occurrence: None)
  Receive Date: 20111229
  Receipt Date: 20111229
  Transmission Date: 20120403
  Serious: Yes (Other)
  Sender: FDA-Public Use
  Company Number: None

PATIENT
  Age: 35 Year
  Sex: Male
  Weight: 102.05 kg

DRUGS (1)
  1. CETIRIZINE [Suspect]
     Indication: MULTIPLE ALLERGIES
     Dosage: 10MG
     Route: 048

REACTIONS (2)
  - URTICARIA [None]
  - DRUG WITHDRAWAL SYNDROME [None]
